FAERS Safety Report 7962503-2 (Version None)
Quarter: 2011Q4

REPORT INFORMATION
  Report Type: 
  Country: None (occurrence: None)
  Receive Date: 20111207
  Receipt Date: 20111202
  Transmission Date: 20120403
  Serious: Yes (Other)
  Sender: FDA-Public Use
  Company Number: US-GLAXOSMITHKLINE-A0954206A

PATIENT
  Age: 6 Year
  Sex: Male

DRUGS (2)
  1. QVAR 40 [Suspect]
     Indication: ASTHMA
     Route: 065
  2. FLOVENT [Suspect]
     Indication: ASTHMA
     Route: 055

REACTIONS (2)
  - ASTHMA [None]
  - THERAPEUTIC RESPONSE DECREASED [None]
